FAERS Safety Report 7562669-2 (Version None)
Quarter: 2011Q2

REPORT INFORMATION
  Report Type: 
  Country: None (occurrence: None)
  Receive Date: 20110622
  Receipt Date: 20110614
  Transmission Date: 20111010
  Serious: Yes (Other)
  Sender: FDA-Public Use
  Company Number: GB-BRISTOL-MYERS SQUIBB COMPANY-15837115

PATIENT
  Sex: Male

DRUGS (1)
  1. IRBESARTAN [Suspect]
     Dosage: DISPERSIBLE TABS

REACTIONS (3)
  - NEOPLASM [None]
  - DYSPHAGIA [None]
  - OESOPHAGEAL OPERATION [None]
